FAERS Safety Report 8228611-6 (Version None)
Quarter: 2012Q1

REPORT INFORMATION
  Report Type: 
  Country: None (occurrence: None)
  Receive Date: 20120322
  Receipt Date: 20110311
  Transmission Date: 20120608
  Serious: Yes (Other)
  Sender: FDA-Public Use
  Company Number: US-BRISTOL-MYERS SQUIBB COMPANY-15595051

PATIENT
  Age: 34 Year
  Sex: Male

DRUGS (3)
  1. ERBITUX [Suspect]
     Indication: COLORECTAL CANCER METASTATIC
     Route: 042
  2. DECADRON [Concomitant]
     Route: 048
  3. DIPHENHYDRAMINE HCL [Concomitant]
     Route: 042

REACTIONS (1)
  - INFUSION RELATED REACTION [None]
